FAERS Safety Report 4477633-X (Version None)
Quarter: 2004Q3

REPORT INFORMATION
  Report Type: 
  Country: None (occurrence: None)
  Receive Date: 20040923
  Receipt Date: 20040730
  Transmission Date: 20050211
  Serious: No
  Sender: FDA-Public Use
  Company Number: USA040773120

PATIENT
  Age: 74 Year
  Sex: Female
  Weight: 66 kg

DRUGS (7)
  1. FORTEO [Suspect]
     Indication: OSTEOPOROSIS
     Dosage: 20 UG DAY
     Dates: start: 20040715
  2. PLAVIX [Concomitant]
  3. ASPIRIN [Concomitant]
  4. METHOTREXATE [Concomitant]
  5. SYNTHROID [Concomitant]
  6. NORVASC [Concomitant]
  7. GALENIC (HYDROCHLOROTHIAZIDE/VALSARTAN) [Concomitant]

REACTIONS (2)
  - DIZZINESS [None]
  - INJECTION SITE HAEMORRHAGE [None]
